FAERS Safety Report 6244711-4 (Version None)
Quarter: 2009Q2

REPORT INFORMATION
  Report Type: 
  Country: None (occurrence: None)
  Receive Date: 20090623
  Receipt Date: 20090623
  Transmission Date: 20091009
  Serious: No
  Sender: FDA-Public Use
  Company Number: None

PATIENT
  Age: 6 Year
  Sex: Female
  Weight: 22.6799 kg

DRUGS (1)
  1. STRATTERA [Suspect]
     Indication: ATTENTION DEFICIT/HYPERACTIVITY DISORDER
     Dosage: 10MG 1/DAY PO
     Route: 048
     Dates: start: 20090612, end: 20090612

REACTIONS (4)
  - ANXIETY [None]
  - FEAR [None]
  - HALLUCINATION [None]
  - PARAESTHESIA [None]
